FAERS Safety Report 14322297 (Version 6)
Quarter: 2018Q2

REPORT INFORMATION
  Report Type: Spontaneous
  Country: DE (occurrence: DE)
  Receive Date: 20171225
  Receipt Date: 20180618
  Transmission Date: 20180711
  Serious: Yes (Life-Threatening, Hospitalization, Other)
  Sender: FDA-Public Use
  Company Number: DE-AUROBINDO-AUR-APL-2017-46945

PATIENT
  Age: 30 Year
  Sex: Male

DRUGS (10)
  1. BENZYLPENICILLIN [Suspect]
     Active Substance: PENICILLIN G
     Indication: INFECTION
     Dosage: ()
     Route: 042
  2. AMPICILLIN AND SULBACTAM [Suspect]
     Active Substance: AMPICILLIN SODIUM\SULBACTAM SODIUM
     Indication: PERIODONTITIS
  3. CIPROFLOXACIN. [Suspect]
     Active Substance: CIPROFLOXACIN
     Dosage: 1 G, QD
     Route: 065
  4. AMOXICILLIN. [Suspect]
     Active Substance: AMOXICILLIN
     Dosage: ()
     Route: 048
  5. AMPICILLIN AND SULBACTAM [Suspect]
     Active Substance: AMPICILLIN SODIUM\SULBACTAM SODIUM
     Indication: INFECTION
     Dosage: UNK
     Route: 042
  6. AMOXICILLIN. [Suspect]
     Active Substance: AMOXICILLIN
     Indication: PERIODONTITIS
     Dosage: UNK
     Route: 048
  7. CIPROFLOXACIN. [Suspect]
     Active Substance: CIPROFLOXACIN
     Indication: PERIODONTITIS
     Dosage: 1 G, DAILY
     Route: 065
  8. CIPROFLOXACIN. [Suspect]
     Active Substance: CIPROFLOXACIN
  9. BENZYLPENICILLIN [Suspect]
     Active Substance: PENICILLIN G
     Indication: PERIODONTITIS
     Dosage: UNK ()
     Route: 042
  10. BENZYLPENICILLIN [Suspect]
     Active Substance: PENICILLIN G
     Dosage: ()
     Route: 065

REACTIONS (17)
  - Systemic inflammatory response syndrome [Unknown]
  - Conjunctivitis [Unknown]
  - Hypervolaemia [Unknown]
  - Dyspnoea [Recovered/Resolved]
  - Proteinuria [Unknown]
  - Renal impairment [Unknown]
  - Tachypnoea [Recovered/Resolved]
  - Hypophagia [Unknown]
  - Oliguria [Unknown]
  - Weight decreased [Recovering/Resolving]
  - Acute generalised exanthematous pustulosis [Recovering/Resolving]
  - Hypotension [Recovering/Resolving]
  - Tachycardia [Recovered/Resolved]
  - Hepatic enzyme increased [Unknown]
  - Oedema peripheral [Recovered/Resolved]
  - Generalised oedema [Recovering/Resolving]
  - Sepsis [Unknown]
